FAERS Safety Report 18606067 (Version 2)
Quarter: 2020Q4

REPORT INFORMATION
  Report Type: Spontaneous
  Country: US (occurrence: US)
  Receive Date: 20201211
  Receipt Date: 20201214
  Transmission Date: 20210114
  Serious: Yes (Hospitalization, Other)
  Sender: FDA-Public Use
  Company Number: US-JNJFOC-20201205358

PATIENT
  Age: 48 Year
  Sex: Male

DRUGS (5)
  1. INVEGA SUSTENNA [Suspect]
     Active Substance: PALIPERIDONE PALMITATE
     Dosage: RECEIVED 3 DOSES OF INVEGA SUSTENNA BETWEEN 02/NOV/2020 AND 17/NOV/2020
     Route: 030
     Dates: start: 20201102
  2. HALDOL [Suspect]
     Active Substance: HALOPERIDOL
     Indication: SCHIZOPHRENIA
     Route: 065
  3. INVEGA SUSTENNA [Suspect]
     Active Substance: PALIPERIDONE PALMITATE
  4. INVEGA SUSTENNA [Suspect]
     Active Substance: PALIPERIDONE PALMITATE
     Indication: PRODUCT USED FOR UNKNOWN INDICATION
     Route: 030
  5. DEPAKOTE [Concomitant]
     Active Substance: DIVALPROEX SODIUM

REACTIONS (9)
  - Hospitalisation [Unknown]
  - Neuroleptic malignant syndrome [Unknown]
  - Off label use [Unknown]
  - Tremor [Unknown]
  - Paranoia [Unknown]
  - Inappropriate schedule of product administration [Unknown]
  - Hallucination [Unknown]
  - Amnesia [Unknown]
  - Drug hypersensitivity [Unknown]

NARRATIVE: CASE EVENT DATE: 202007
